FAERS Safety Report 21875546 (Version 1)
Quarter: 2023Q1

REPORT INFORMATION
  Report Type: Spontaneous
  Country: TR (occurrence: TR)
  Receive Date: 20230118
  Receipt Date: 20230118
  Transmission Date: 20230417
  Serious: Yes (Other)
  Sender: FDA-Public Use
  Company Number: TR-MACLEODS PHARMACEUTICALS US LTD-MAC2023039250

PATIENT

DRUGS (9)
  1. VENLAFAXINE [Suspect]
     Active Substance: VENLAFAXINE HYDROCHLORIDE
     Indication: Major depression
     Dosage: 150 MILLIGRAM, QD
     Route: 065
  2. ARIPIPRAZOLE [Suspect]
     Active Substance: ARIPIPRAZOLE
     Indication: Major depression
     Dosage: 5 MILLIGRAM, QD
     Route: 065
  3. METFORMIN [Concomitant]
     Active Substance: METFORMIN HYDROCHLORIDE
     Indication: Diabetes mellitus
     Dosage: 1000 MILLIGRAM, QD
     Route: 065
  4. PROPRANOLOL [Concomitant]
     Active Substance: PROPRANOLOL HYDROCHLORIDE
     Indication: Palpitations
     Dosage: 40 MILLIGRAM, QD
     Route: 065
  5. PROPRANOLOL [Concomitant]
     Active Substance: PROPRANOLOL HYDROCHLORIDE
     Indication: Tremor
     Dosage: 60 MILLIGRAM, QD
     Route: 065
  6. PROPRANOLOL [Concomitant]
     Active Substance: PROPRANOLOL HYDROCHLORIDE
     Indication: Extrapyramidal disorder
  7. PROPRANOLOL [Concomitant]
     Active Substance: PROPRANOLOL HYDROCHLORIDE
     Indication: Parkinsonism
  8. MODAFINIL [Concomitant]
     Active Substance: MODAFINIL
     Indication: Somnolence
     Dosage: 100 MILLIGRAM, QD
     Route: 065
  9. MODAFINIL [Concomitant]
     Active Substance: MODAFINIL
     Indication: Asthenia

REACTIONS (2)
  - Parkinsonism [Recovering/Resolving]
  - Extrapyramidal disorder [Recovering/Resolving]
